FAERS Safety Report 11148618 (Version 1)
Quarter: 2015Q2

REPORT INFORMATION
  Report Type: Spontaneous
  Country: US (occurrence: US)
  Receive Date: 20150529
  Receipt Date: 20150529
  Transmission Date: 20150821
  Serious: No
  Sender: FDA-Public Use
  Company Number: US-PFIZER INC-2015176963

PATIENT
  Age: 64 Year
  Sex: Female
  Weight: 69 kg

DRUGS (5)
  1. ASPIRIN. [Concomitant]
     Active Substance: ASPIRIN
     Dosage: 81 MG, DAILY
  2. AGGRENOX [Concomitant]
     Active Substance: ASPIRIN\DIPYRIDAMOLE
     Dosage: ([ACETYLSALICYLIC ACID 25 MG]/[DIPYRIDAMOLE 100 MG]), 2X/DAY
  3. LYRICA [Suspect]
     Active Substance: PREGABALIN
     Indication: PAIN
  4. LYRICA [Suspect]
     Active Substance: PREGABALIN
     Indication: NERVE INJURY
     Dosage: 600 MG, DAILY
  5. CYMBALTA [Concomitant]
     Active Substance: DULOXETINE HYDROCHLORIDE
     Indication: PAIN
     Dosage: UNK, 1X/DAY

REACTIONS (5)
  - Fall [Unknown]
  - Mobility decreased [Unknown]
  - Joint injury [Unknown]
  - Anger [Unknown]
  - Crying [Unknown]
